FAERS Safety Report 7565646-0 (Version None)
Quarter: 2011Q2

REPORT INFORMATION
  Report Type: 
  Country: None (occurrence: None)
  Receive Date: 20110616
  Receipt Date: 20110601
  Transmission Date: 20111010
  Serious: Yes (Hospitalization)
  Sender: FDA-Public Use
  Company Number: 2011-1601

PATIENT
  Age: 35 Year
  Sex: Female
  Weight: 74.8 kg

DRUGS (4)
  1. LANREOTIDE AUTOGEL (LANREOTIDE) (LANREOTIDE ACETATE) [Suspect]
     Indication: ACROMEGALY
     Dosage: 90MG (90 MG, 1 IN 1 28 D), SUBCUTANEOUS; 120MG (120 MG, 1 IN 28 D), SUBCUTANEOUS
     Route: 058
     Dates: start: 20110114
  2. LANREOTIDE AUTOGEL (LANREOTIDE) (LANREOTIDE ACETATE) [Suspect]
     Indication: ACROMEGALY
     Dosage: 90MG (90 MG, 1 IN 1 28 D), SUBCUTANEOUS; 120MG (120 MG, 1 IN 28 D), SUBCUTANEOUS
     Route: 058
     Dates: start: 20110329
  3. MULTIVITAMIN [Concomitant]
  4. ATENOLOL [Concomitant]

REACTIONS (3)
  - FAECALOMA [None]
  - GASTROINTESTINAL DISORDER [None]
  - NO THERAPEUTIC RESPONSE [None]
